FAERS Safety Report 9442106 (Version 1)
Quarter: 2013Q3

REPORT INFORMATION
  Report Type: Report from Study
  Country: US (occurrence: US)
  Receive Date: 20130806
  Receipt Date: 20130806
  Transmission Date: 20140515
  Serious: Yes (Other)
  Sender: FDA-Public Use
  Company Number: PHEH2013US016077

PATIENT
  Sex: Male

DRUGS (4)
  1. TASIGNA [Suspect]
     Indication: CHRONIC MYELOID LEUKAEMIA
     Dosage: 300 MG, UNK
     Route: 048
     Dates: start: 20110526, end: 201305
  2. TASIGNA [Suspect]
     Dosage: 300 MG, BID
     Route: 048
     Dates: start: 201305
  3. METFORMIN [Concomitant]
  4. PROMETHAZINE HYDROCHLORIDE [Concomitant]

REACTIONS (8)
  - Hepatic steatosis [Unknown]
  - Aspartate aminotransferase increased [Unknown]
  - Alanine aminotransferase increased [Unknown]
  - Hepatosplenomegaly [Unknown]
  - Haematocrit increased [Unknown]
  - Skin lesion [Unknown]
  - Weight decreased [Unknown]
  - Haemoglobin increased [Unknown]
